FAERS Safety Report 8809854 (Version 1)
Quarter: 2012Q4

REPORT INFORMATION
  Report Type: 
  Country: IT (occurrence: IT)
  Receive Date: 20120926
  Receipt Date: 20120926
  Transmission Date: 20130627
  Serious: Yes (Hospitalization)
  Sender: FDA-Public Use
  Company Number: IT-ROCHE-1134357

PATIENT
  Age: 45 Year
  Sex: Female

DRUGS (7)
  1. VALIUM [Suspect]
     Indication: PRODUCT USED FOR UNKNOWN INDICATION
     Route: 048
     Dates: start: 20120506, end: 20120506
  2. RAMIPRIL [Concomitant]
     Route: 065
  3. GARDENALE [Concomitant]
     Route: 048
  4. RIVOTRIL [Concomitant]
     Route: 065
  5. TOLEP [Concomitant]
     Route: 065
  6. VIMPAT [Concomitant]
     Route: 065
  7. CITALOPRAM [Concomitant]

REACTIONS (2)
  - Epilepsy [Recovering/Resolving]
  - Injury [Recovering/Resolving]
